FAERS Safety Report 8136504-8 (Version None)
Quarter: 2012Q1

REPORT INFORMATION
  Report Type: 
  Country: None (occurrence: None)
  Receive Date: 20120209
  Receipt Date: 20120117
  Transmission Date: 20120608
  Serious: Yes (Other)
  Sender: FDA-Public Use
  Company Number: DSA_54902_2012

PATIENT

DRUGS (3)
  1. NOZINAN [Concomitant]
  2. XENAZINA (XENAZINA - TETRABENAZINE) 150 MG (NOT SPECIFIED) [Suspect]
     Indication: TARDIVE DYSKINESIA
     Dosage: (150 MG QD ORAL)
     Route: 048
     Dates: start: 20111021, end: 20111104
  3. RISPERDAL [Concomitant]

REACTIONS (4)
  - MOVEMENT DISORDER [None]
  - SALIVARY HYPERSECRETION [None]
  - TREMOR [None]
  - MUSCLE RIGIDITY [None]
